FAERS Safety Report 16426290 (Version 5)
Quarter: 2019Q3

REPORT INFORMATION
  Report Type: Spontaneous
  Country: FR (occurrence: FR)
  Receive Date: 20190613
  Receipt Date: 20190722
  Transmission Date: 20191004
  Serious: Yes (Death, Life-Threatening, Other)
  Sender: FDA-Public Use
  Company Number: FR-JNJFOC-20190613887

PATIENT
  Age: 33 Year
  Sex: Male

DRUGS (5)
  1. DOXORUBICIN HYDROCHLORIDE. [Suspect]
     Active Substance: DOXORUBICIN HYDROCHLORIDE
     Indication: CUTANEOUS T-CELL LYMPHOMA
     Route: 065
     Dates: start: 200206
  2. VINCRISTINE SULFATE. [Suspect]
     Active Substance: VINCRISTINE SULFATE
     Indication: CUTANEOUS T-CELL LYMPHOMA
     Route: 065
     Dates: start: 200206
  3. CYCLOPHOSPHAMIDE. [Suspect]
     Active Substance: CYCLOPHOSPHAMIDE
     Indication: CUTANEOUS T-CELL LYMPHOMA
     Route: 065
     Dates: start: 200206
  4. PREDNISONE. [Suspect]
     Active Substance: PREDNISONE
     Indication: CUTANEOUS T-CELL LYMPHOMA
     Route: 065
     Dates: start: 200206
  5. DOXORUBICIN HYDROCHLORIDE. [Suspect]
     Active Substance: DOXORUBICIN HYDROCHLORIDE
     Route: 065
     Dates: start: 200402

REACTIONS (9)
  - Paraesthesia [Unknown]
  - Lung infection [Fatal]
  - Staphylococcal sepsis [Unknown]
  - Pulmonary sepsis [Fatal]
  - Bone marrow toxicity [Unknown]
  - Product use in unapproved indication [Unknown]
  - Neoplasm recurrence [Fatal]
  - Cardiotoxicity [Unknown]
  - Off label use [Unknown]
